FAERS Safety Report 22164804 (Version 3)
Quarter: 2023Q2

REPORT INFORMATION
  Report Type: Spontaneous
  Country: FR (occurrence: FR)
  Receive Date: 20230403
  Receipt Date: 20230405
  Transmission Date: 20230721
  Serious: Yes (Death, Other)
  Sender: FDA-Public Use
  Company Number: None

PATIENT

DRUGS (3)
  1. DICLOFENAC DIETHYLAMINE [Suspect]
     Active Substance: DICLOFENAC DIETHYLAMINE
     Indication: Gout
     Dosage: 1 DF (LP 75 MG)
     Route: 048
     Dates: start: 20220402, end: 20220404
  2. XARELTO [Suspect]
     Active Substance: RIVAROXABAN
     Indication: Atrial fibrillation
     Dosage: 1 DF
     Route: 048
  3. XARELTO [Suspect]
     Active Substance: RIVAROXABAN
     Dosage: UNK (PATIENT RECEIVED LAST DOSE OF XARELTO ON 05 APR 2022)
     Route: 048

REACTIONS (1)
  - Upper gastrointestinal perforation [Fatal]

NARRATIVE: CASE EVENT DATE: 20220405
